FAERS Safety Report 6614913-3 (Version None)
Quarter: 2010Q1

REPORT INFORMATION
  Report Type: 
  Country: None (occurrence: None)
  Receive Date: 20100305
  Receipt Date: 20100221
  Transmission Date: 20100710
  Serious: Yes (Hospitalization)
  Sender: FDA-Public Use
  Company Number: IT-RANBAXY-2010RR-31418

PATIENT
  Age: 49 Year
  Sex: Female

DRUGS (2)
  1. NIMESULIDE [Suspect]
  2. PARACETAMOL [Suspect]

REACTIONS (1)
  - ERYTHEMA [None]
